FAERS Safety Report 5311666-6 (Version None)
Quarter: 2007Q2

REPORT INFORMATION
  Report Type: 
  Country: None (occurrence: None)
  Receive Date: 20070426
  Receipt Date: 20070426
  Transmission Date: 20071010
  Serious: Yes (Hospitalization)
  Sender: FDA-Public Use
  Company Number: None

PATIENT
  Sex: Male
  Weight: 59 kg

DRUGS (4)
  1. FLUOROURACIL [Suspect]
     Dosage: 4550 MG
     Dates: end: 20060726
  2. BEVACIZUMAB (RHUMAB VEGF) [Suspect]
     Dosage: 270 MG
     Dates: end: 20060726
  3. LEUCOVORIN CALCIUIM [Suspect]
     Dosage: 650 MG
     Dates: end: 20060726
  4. ELOXATIN [Suspect]
     Dosage: 140 MG
     Dates: end: 20060726

REACTIONS (1)
  - DYSPNOEA [None]
